FAERS Safety Report 4381262-6 (Version None)
Quarter: 2004Q2

REPORT INFORMATION
  Report Type: 
  Country: None (occurrence: None)
  Receive Date: 20040616
  Receipt Date: 20040527
  Transmission Date: 20050107
  Serious: Yes (Other)
  Sender: FDA-Public Use
  Company Number: USA040568771

PATIENT
  Age: 55 Year
  Sex: Male

DRUGS (4)
  1. PROZAC [Suspect]
     Dates: end: 20040101
  2. BETAPACE [Concomitant]
  3. LANOXIN [Concomitant]
  4. COUMADIN [Concomitant]

REACTIONS (4)
  - ATRIAL FIBRILLATION [None]
  - ATRIAL FLUTTER [None]
  - BREAST TENDERNESS [None]
  - HYPERTROPHY BREAST [None]
